FAERS Safety Report 5806643-2 (Version None)
Quarter: 2008Q3

REPORT INFORMATION
  Report Type: 
  Country: None (occurrence: None)
  Receive Date: 20080710
  Receipt Date: 20080703
  Transmission Date: 20090109
  Serious: Yes (Hospitalization)
  Sender: FDA-Public Use
  Company Number: GB-ABBOTT-08P-167-0461223-00

PATIENT
  Age: 72 Year
  Sex: Female

DRUGS (8)
  1. ERYTHROMYCIN BASE [Suspect]
     Indication: CELLULITIS
     Route: 048
     Dates: start: 20070226, end: 20070304
  2. AMINOPHYLLINE [Suspect]
     Indication: ASTHMA
     Dates: end: 20070324
  3. FUROSEMIDE [Concomitant]
     Indication: HYPERTENSION
  4. QUININE [Concomitant]
     Indication: DRUG USE FOR UNKNOWN INDICATION
  5. ALBUTEROL [Concomitant]
     Indication: DRUG USE FOR UNKNOWN INDICATION
  6. CROMOLYN SODIUM [Concomitant]
     Indication: DRUG USE FOR UNKNOWN INDICATION
  7. BUDESONIDE W/FORMOTEROL FUMARATE [Concomitant]
     Indication: DRUG USE FOR UNKNOWN INDICATION
  8. TELMISARTAN [Concomitant]
     Indication: HYPERTENSION

REACTIONS (1)
  - DRUG TOXICITY [None]
